FAERS Safety Report 15134565 (Version 5)
Quarter: 2018Q3

REPORT INFORMATION
  Report Type: Spontaneous
  Country: US (occurrence: US)
  Receive Date: 20180712
  Receipt Date: 20180910
  Transmission Date: 20181010
  Serious: No
  Sender: FDA-Public Use
  Company Number: US-GLAXOSMITHKLINE-US2018122093

PATIENT
  Sex: Female

DRUGS (2)
  1. BENLYSTA [Suspect]
     Active Substance: BELIMUMAB
     Dosage: 200 MG, WE
     Route: 058
  2. BENLYSTA [Suspect]
     Active Substance: BELIMUMAB
     Indication: SYSTEMIC LUPUS ERYTHEMATOSUS
     Dosage: 200 MG, WE
     Route: 058

REACTIONS (8)
  - Overdose [Unknown]
  - Injection site reaction [Not Recovered/Not Resolved]
  - Drug ineffective [Unknown]
  - Injection site rash [Not Recovered/Not Resolved]
  - Injection site irritation [Not Recovered/Not Resolved]
  - Wrong technique in device usage process [Unknown]
  - General symptom [Unknown]
  - Product quality issue [Unknown]
